FAERS Safety Report 8215480-3 (Version None)
Quarter: 2012Q1

REPORT INFORMATION
  Report Type: 
  Country: None (occurrence: None)
  Receive Date: 20120316
  Receipt Date: 20120213
  Transmission Date: 20120608
  Serious: No
  Sender: FDA-Public Use
  Company Number: US-ROCHE-1040269

PATIENT
  Sex: Female

DRUGS (1)
  1. NUTROPIN [Suspect]
     Indication: PRODUCT USED FOR UNKNOWN INDICATION
     Dosage: DOSE REPORTED AS 3
     Dates: start: 20070201

REACTIONS (3)
  - SCOLIOSIS [None]
  - ARTHRALGIA [None]
  - SPINAL DISORDER [None]
